FAERS Safety Report 8548152-6 (Version None)
Quarter: 2012Q3

REPORT INFORMATION
  Report Type: 
  Country: None (occurrence: None)
  Receive Date: 20120730
  Receipt Date: 20120718
  Transmission Date: 20120928
  Serious: Yes (Hospitalization)
  Sender: FDA-Public Use
  Company Number: US-BIOGENIDEC-2012BI018070

PATIENT
  Sex: Male

DRUGS (7)
  1. PROVIGIL [Concomitant]
  2. TIZANIDINE HCL [Concomitant]
  3. TYSABRI [Suspect]
     Indication: MULTIPLE SCLEROSIS
     Route: 042
     Dates: start: 20090930, end: 20110929
  4. TYSABRI [Suspect]
     Route: 042
     Dates: start: 20120411
  5. PREDNISONE [Concomitant]
  6. OMEPRAZOLE [Concomitant]
  7. SERTRALINE HYDROCHLORIDE [Concomitant]

REACTIONS (1)
  - MULTIPLE SCLEROSIS RELAPSE [None]
